FAERS Safety Report 8390522-3 (Version None)
Quarter: 2012Q2

REPORT INFORMATION
  Report Type: 
  Country: None (occurrence: None)
  Receive Date: 20120517
  Receipt Date: 20120511
  Transmission Date: 20120825
  Serious: Yes (Life-Threatening, Hospitalization)
  Sender: FDA-Public Use
  Company Number: 2012SP025519

PATIENT
  Age: 56 Year
  Sex: Female
  Weight: 50 kg

DRUGS (2)
  1. DESOGESTRE/ETHINYL ESTRADIOL [Suspect]
     Indication: CONTRACEPTION
     Dosage: PO
     Route: 048
     Dates: start: 20080101, end: 20111201
  2. DESOGESTRE/ETHINYL ESTRADIOL [Suspect]
     Indication: CONTRACEPTION
     Dosage: PO
     Route: 048
     Dates: start: 20040101

REACTIONS (3)
  - UTERINE NEOPLASM [None]
  - HEADACHE [None]
  - CEREBROVASCULAR ACCIDENT [None]
